FAERS Safety Report 11494026 (Version 1)
Quarter: 2015Q3

REPORT INFORMATION
  Report Type: Spontaneous
  Country: US (occurrence: US)
  Receive Date: 20150911
  Receipt Date: 20150911
  Transmission Date: 20151125
  Serious: No
  Sender: FDA-Public Use
  Company Number: US-ROCHE-1021071

PATIENT
  Age: 56 Year
  Sex: Female

DRUGS (1)
  1. PEGASYS [Suspect]
     Active Substance: PEGINTERFERON ALFA-2A
     Indication: PRODUCT USED FOR UNKNOWN INDICATION
     Route: 065

REACTIONS (9)
  - Dysgeusia [Unknown]
  - Skin fissures [Unknown]
  - Pain in extremity [Unknown]
  - Glossodynia [Unknown]
  - Nasal pruritus [Unknown]
  - Fatigue [Unknown]
  - Hunger [Unknown]
  - Nasal dryness [Unknown]
  - Pruritus [Unknown]
